FAERS Safety Report 23747297 (Version 1)
Quarter: 2024Q2

REPORT INFORMATION
  Report Type: Spontaneous
  Country: CH (occurrence: CH)
  Receive Date: 20240416
  Receipt Date: 20240416
  Transmission Date: 20240716
  Serious: Yes (Other)
  Sender: FDA-Public Use
  Company Number: CH-Atnahs Limited-ATNAHS20201004867

PATIENT
  Age: 65 Year
  Sex: Female

DRUGS (8)
  1. BONVIVA [Suspect]
     Active Substance: IBANDRONATE SODIUM
     Indication: Osteoporosis
     Dosage: PREFILLED SYRINGES 3 MG/3 ML
     Route: 065
     Dates: start: 201910, end: 2019
  2. ACTONEL [Suspect]
     Active Substance: RISEDRONATE SODIUM
     Indication: Product used for unknown indication
     Dosage: ACTONEL 35MG FOR 3 YEARS
     Route: 065
     Dates: start: 20201116
  3. IBUPROFEN [Suspect]
     Active Substance: IBUPROFEN
     Indication: Product used for unknown indication
     Route: 065
  4. DAFALGAN [Concomitant]
     Active Substance: ACETAMINOPHEN
     Indication: Product used for unknown indication
  5. CALCIUM\CHOLECALCIFEROL [Concomitant]
     Active Substance: CALCIUM\CHOLECALCIFEROL
     Indication: Product used for unknown indication
  6. MAGNESIUM [Concomitant]
     Active Substance: MAGNESIUM
     Indication: Product used for unknown indication
  7. LASIX [Concomitant]
     Active Substance: FUROSEMIDE
     Indication: Product used for unknown indication
     Dosage: 50 - 60 MG LASIX (FUROSEMIDE)
  8. ACETAMINOPHEN [Concomitant]
     Active Substance: ACETAMINOPHEN
     Indication: Pain

REACTIONS (10)
  - Rash pruritic [Unknown]
  - Hypersensitivity [Unknown]
  - Dizziness [Unknown]
  - Blood pressure decreased [Unknown]
  - Anaphylactic shock [Unknown]
  - Diverticulitis [Unknown]
  - Drug intolerance [Unknown]
  - Pelvic congestion [Unknown]
  - Osteoarthritis [Unknown]
  - Myalgia [Unknown]

NARRATIVE: CASE EVENT DATE: 20230901
